FAERS Safety Report 4900787-5 (Version None)
Quarter: 2006Q1

REPORT INFORMATION
  Report Type: 
  Country: None (occurrence: None)
  Receive Date: 20060201
  Receipt Date: 20060120
  Transmission Date: 20060701
  Serious: Yes (Other)
  Sender: FDA-Public Use
  Company Number: GXKR2006BR00613

PATIENT
  Sex: Female

DRUGS (1)
  1. TRAMADOL HCL [Suspect]
     Indication: POSTOPERATIVE CARE
     Dosage: 50 MG, ORAL
     Route: 048

REACTIONS (1)
  - CALCULUS BLADDER [None]
